FAERS Safety Report 9694188 (Version 1)
Quarter: 2013Q4

REPORT INFORMATION
  Report Type: Report from Study
  Country: GB (occurrence: GB)
  Receive Date: 20131118
  Receipt Date: 20131118
  Transmission Date: 20140711
  Serious: Yes (Hospitalization)
  Sender: FDA-Public Use
  Company Number: PHHY2013GB128815

PATIENT
  Age: 69 Year
  Sex: Female
  Weight: 66.2 kg

DRUGS (12)
  1. DOCETAXEL [Suspect]
     Indication: BREAST CANCER
     Route: 042
  2. DOCETAXEL [Suspect]
     Dosage: 120 MG, UNK
     Route: 042
  3. DOCETAXEL [Suspect]
     Dosage: 100 MG, UNK
     Route: 065
     Dates: start: 20120801
  4. CARBOPLATIN [Suspect]
     Indication: BREAST CANCER
     Route: 042
  5. CARBOPLATIN [Suspect]
     Dosage: 642 MG, UNK
     Route: 042
  6. CARBOPLATIN [Suspect]
     Dosage: 300 MG, UNK
     Route: 065
     Dates: start: 20120801
  7. HERCEPTIN [Suspect]
     Indication: BREAST CANCER
     Dosage: 400 MG, UNK
     Route: 042
     Dates: start: 20120612
  8. LANSOPRAZOLE [Concomitant]
     Route: 065
     Dates: start: 20120703
  9. LANSOPRAZOLE [Concomitant]
     Route: 065
     Dates: start: 20120808
  10. THYROXINE [Concomitant]
  11. SUCRALFATE [Concomitant]
     Route: 065
     Dates: start: 20120710
  12. DOMPERIDONE [Concomitant]
     Route: 065
     Dates: start: 20120704

REACTIONS (4)
  - Malaise [Recovered/Resolved]
  - Dehydration [Recovered/Resolved]
  - Nausea [Recovered/Resolved]
  - Vomiting [Recovered/Resolved]
